FAERS Safety Report 5463847-9 (Version None)
Quarter: 2007Q3

REPORT INFORMATION
  Report Type: 
  Country: None (occurrence: None)
  Receive Date: 20070921
  Receipt Date: 20070917
  Transmission Date: 20080115
  Serious: Yes (Hospitalization)
  Sender: FDA-Public Use
  Company Number: DE-MERCK-0709DEU00787

PATIENT
  Age: 67 Year
  Sex: Female

DRUGS (21)
  1. VYTORIN [Suspect]
     Indication: HYPERLIPIDAEMIA
     Route: 048
     Dates: start: 20050101, end: 20060101
  2. CLONIDINE HYDROCHLORIDE [Suspect]
     Indication: HYPERTENSION
     Route: 065
  3. INDAPAMIDE [Suspect]
     Indication: HYPERTENSION
     Route: 048
  4. HYDROCHLOROTHIAZIDE [Suspect]
     Indication: HYPERTENSION
     Route: 048
  5. METOCLOPRAMIDE [Suspect]
     Route: 048
  6. HYZAAR [Suspect]
     Indication: HYPERTENSION
     Route: 048
  7. ALLOPURINOL [Suspect]
     Route: 048
  8. MELOXICAM [Suspect]
     Indication: BACK PAIN
     Route: 065
     Dates: start: 20060102
  9. MELOXICAM [Suspect]
     Indication: ABDOMINAL PAIN LOWER
     Route: 065
     Dates: start: 20060102
  10. ACETAMINOPHEN AND CODEINE PHOSPHATE [Suspect]
     Indication: BACK PAIN
     Route: 048
     Dates: start: 20060102
  11. ACETAMINOPHEN AND CODEINE PHOSPHATE [Suspect]
     Indication: ABDOMINAL PAIN LOWER
     Route: 048
     Dates: start: 20060102
  12. PRIDINOL MESYLATE [Suspect]
     Indication: BACK PAIN
     Route: 048
     Dates: start: 20060102
  13. PRIDINOL MESYLATE [Suspect]
     Indication: ABDOMINAL PAIN LOWER
     Route: 048
     Dates: start: 20060102
  14. DIPYRONE [Suspect]
     Indication: BACK PAIN
     Route: 065
     Dates: start: 20060103
  15. DIPYRONE [Suspect]
     Indication: ABDOMINAL PAIN LOWER
     Route: 065
     Dates: start: 20060103
  16. ESOMEPRAZOLE MAGNESIUM [Suspect]
     Indication: GASTRIC DISORDER
     Route: 048
     Dates: start: 20060104
  17. ESOMEPRAZOLE MAGNESIUM [Suspect]
     Indication: NAUSEA
     Route: 048
     Dates: start: 20060104
  18. METOCLOPRAMIDE HYDROCHLORIDE [Suspect]
     Indication: GASTRIC DISORDER
     Route: 048
     Dates: start: 20060104
  19. METOCLOPRAMIDE HYDROCHLORIDE [Suspect]
     Indication: NAUSEA
     Route: 048
     Dates: start: 20060104
  20. [THERAPY UNSPECIFIED] [Suspect]
     Indication: GASTRIC DISORDER
     Route: 048
     Dates: start: 20060104
  21. [THERAPY UNSPECIFIED] [Suspect]
     Indication: NAUSEA
     Route: 048
     Dates: start: 20060104

REACTIONS (3)
  - DRUG INTERACTION [None]
  - RENAL FAILURE ACUTE [None]
  - RHABDOMYOLYSIS [None]
